FAERS Safety Report 19400223 (Version 1)
Quarter: 2021Q2

REPORT INFORMATION
  Report Type: Spontaneous
  Country: US (occurrence: US)
  Receive Date: 20210610
  Receipt Date: 20210610
  Transmission Date: 20210717
  Serious: Yes (Other)
  Sender: FDA-Public Use
  Company Number: US-NOVOPROD-810486

PATIENT
  Age: 64 Year
  Sex: Female

DRUGS (2)
  1. METOCLOPRAMIDE. [Concomitant]
     Active Substance: METOCLOPRAMIDE
     Indication: IMPAIRED GASTRIC EMPTYING
     Dosage: UNK
  2. SAXENDA [Suspect]
     Active Substance: LIRAGLUTIDE
     Indication: OVERWEIGHT
     Dosage: 0.5 ML, QD
     Route: 058
     Dates: start: 20210203

REACTIONS (4)
  - Off label use [Unknown]
  - Impaired gastric emptying [Recovered/Resolved]
  - Weight loss poor [Not Recovered/Not Resolved]
  - Bezoar [Unknown]

NARRATIVE: CASE EVENT DATE: 2021
